FAERS Safety Report 13944255 (Version 1)
Quarter: 2017Q3

REPORT INFORMATION
  Report Type: Spontaneous
  Country: IT (occurrence: IT)
  Receive Date: 20170907
  Receipt Date: 20170907
  Transmission Date: 20171128
  Serious: Yes (Hospitalization)
  Sender: FDA-Public Use
  Company Number: IT-ELI_LILLY_AND_COMPANY-IT201709000741

PATIENT
  Age: 83 Year
  Sex: Female

DRUGS (7)
  1. FORSTEO 250UG/ML [Suspect]
     Active Substance: TERIPARATIDE
     Dosage: UNK, UNKNOWN
     Route: 065
     Dates: start: 20170720, end: 201708
  2. BRILIQUE [Concomitant]
     Active Substance: TICAGRELOR
     Indication: INFARCTION
  3. TRINITRINE [Concomitant]
     Active Substance: NITROGLYCERIN
     Indication: INFARCTION
  4. CARDIOASPIRIN [Concomitant]
     Active Substance: ASPIRIN
     Indication: INFARCTION
  5. FORSTEO 250UG/ML [Suspect]
     Active Substance: TERIPARATIDE
     Indication: OSTEOPOROSIS
     Dosage: UNK, UNKNOWN
     Route: 065
     Dates: start: 201702
  6. ASPIRINETTA [Concomitant]
     Active Substance: ASPIRIN
     Indication: INFARCTION
  7. FORSTEO 250UG/ML [Suspect]
     Active Substance: TERIPARATIDE
     Dosage: UNK
     Route: 065
     Dates: start: 20170828

REACTIONS (3)
  - Incorrect drug administration duration [Unknown]
  - Ecchymosis [Unknown]
  - Infarction [Unknown]

NARRATIVE: CASE EVENT DATE: 201708
